FAERS Safety Report 9378993 (Version 1)
Quarter: 2013Q3

REPORT INFORMATION
  Report Type: Spontaneous
  Country: FR (occurrence: FR)
  Receive Date: 20130702
  Receipt Date: 20130702
  Transmission Date: 20140515
  Serious: Yes (Hospitalization, Other)
  Sender: FDA-Public Use
  Company Number: FR-009507513-1306FRA011210

PATIENT
  Age: 68 Year
  Sex: Female

DRUGS (1)
  1. FOSAVANCE [Suspect]
     Indication: PRODUCT USED FOR UNKNOWN INDICATION
     Dosage: UNK
     Route: 048
     Dates: end: 200801

REACTIONS (1)
  - Osteonecrosis [Not Recovered/Not Resolved]
